FAERS Safety Report 22145901 (Version 2)
Quarter: 2024Q2

REPORT INFORMATION
  Report Type: Spontaneous
  Country: US (occurrence: US)
  Receive Date: 20230328
  Receipt Date: 20240430
  Transmission Date: 20240716
  Serious: Yes (Other)
  Sender: FDA-Public Use
  Company Number: US-MLMSERVICE-20230307-4149175-1

PATIENT
  Age: 13 Year
  Sex: Male

DRUGS (10)
  1. ALEMTUZUMAB [Suspect]
     Active Substance: ALEMTUZUMAB
     Indication: Bone marrow conditioning regimen
     Dosage: UNKNOWN
     Route: 065
     Dates: start: 2013
  2. CYCLOSPORINE [Suspect]
     Active Substance: CYCLOSPORINE
     Indication: Prophylaxis against graft versus host disease
     Dosage: UNKNOWN
     Route: 065
     Dates: start: 2013
  3. ETANERCEPT [Suspect]
     Active Substance: ETANERCEPT
     Indication: Acute graft versus host disease
     Dosage: UNKNOWN (T+243 THROUGH T+249 , T+328 THROUGH T+343)
     Route: 065
  4. FLUDARABINE [Suspect]
     Active Substance: FLUDARABINE PHOSPHATE
     Indication: Bone marrow conditioning regimen
     Dosage: UNKNOWN
     Route: 065
     Dates: start: 2013
  5. INFLIXIMAB [Suspect]
     Active Substance: INFLIXIMAB
     Indication: Acute graft versus host disease
     Dosage: UNKNOWN
     Route: 065
  6. MELPHALAN [Suspect]
     Active Substance: MELPHALAN
     Indication: Bone marrow conditioning regimen
     Dosage: UNKNOWN
     Route: 065
     Dates: start: 2013
  7. METHYLPREDNISOLONE [Suspect]
     Active Substance: METHYLPREDNISOLONE
     Dosage: NOT APPLICABLE (COMPANY^S SUSPECT PRODUCT NOT ADMINISTERED)
  8. METHYLPREDNISOLONE [Suspect]
     Active Substance: METHYLPREDNISOLONE
     Indication: Immunosuppression
     Dosage: UNK
     Route: 065
  9. MYCOPHENOLATE MOFETIL [Suspect]
     Active Substance: MYCOPHENOLATE MOFETIL
     Indication: Prophylaxis against graft versus host disease
     Dosage: UNKNOWN
     Route: 065
     Dates: start: 2013
  10. TACROLIMUS [Suspect]
     Active Substance: TACROLIMUS
     Indication: Immunosuppressant drug therapy
     Dosage: UNKNOWN
     Route: 065

REACTIONS (2)
  - Mass [Recovering/Resolving]
  - Mycobacterial infection [Recovering/Resolving]

NARRATIVE: CASE EVENT DATE: 20140101
